FAERS Safety Report 8562371-4 (Version None)
Quarter: 2012Q3

REPORT INFORMATION
  Report Type: 
  Country: None (occurrence: None)
  Receive Date: 20120802
  Receipt Date: 20120725
  Transmission Date: 20120928
  Serious: Yes (Hospitalization)
  Sender: FDA-Public Use
  Company Number: US-UCBSA-8053521

PATIENT
  Age: 28 Year
  Sex: Female
  Weight: 52.4 kg

DRUGS (2)
  1. PREDNISONE [Concomitant]
     Indication: CROHN'S DISEASE
     Dates: start: 20041001
  2. CIMZIA [Suspect]
     Indication: CROHN'S DISEASE
     Route: 058
     Dates: start: 20081201

REACTIONS (1)
  - INFLUENZA [None]
